FAERS Safety Report 23384672 (Version 2)
Quarter: 2024Q1

REPORT INFORMATION
  Report Type: Spontaneous
  Country: US (occurrence: US)
  Receive Date: 20240109
  Receipt Date: 20240305
  Transmission Date: 20240410
  Serious: No
  Sender: FDA-Public Use
  Company Number: US-PFIZER INC-PV202300185412

PATIENT
  Age: 79 Year
  Sex: Male

DRUGS (1)
  1. VYNDAMAX [Suspect]
     Active Substance: TAFAMIDIS
     Indication: Acquired ATTR amyloidosis
     Dosage: 61 MG DAILY
     Dates: start: 2023

REACTIONS (7)
  - Dizziness [Unknown]
  - Weight increased [Unknown]
  - Onychoclasis [Unknown]
  - Fatigue [Unknown]
  - Acquired ATTR amyloidosis [Unknown]
  - Disease progression [Unknown]
  - Musculoskeletal disorder [Unknown]
